FAERS Safety Report 11673194 (Version 1)
Quarter: 2015Q4

REPORT INFORMATION
  Report Type: Spontaneous
  Country: US (occurrence: US)
  Receive Date: 20151027
  Receipt Date: 20151027
  Transmission Date: 20160304
  Serious: No
  Sender: FDA-Public Use
  Company Number: US-ELI_LILLY_AND_COMPANY-US201007003624

PATIENT
  Sex: Female

DRUGS (9)
  1. MULTIVITAMIN [Concomitant]
     Active Substance: VITAMINS
  2. VITAMIN D [Concomitant]
     Active Substance: CHOLECALCIFEROL
  3. CALCIUM [Concomitant]
     Active Substance: CALCIUM
  4. SULFADINE [Concomitant]
     Active Substance: SULFAMETHAZINE
  5. CELEBREX [Concomitant]
     Active Substance: CELECOXIB
  6. FORTEO [Suspect]
     Active Substance: TERIPARATIDE
     Indication: OSTEOGENESIS IMPERFECTA
     Dosage: 20 UG, DAILY (1/D)
  7. ORENCIA [Concomitant]
     Active Substance: ABATACEPT
  8. ASPIRIN CHILDREN [Concomitant]
  9. VITAMIN C [Concomitant]
     Active Substance: ASCORBIC ACID

REACTIONS (3)
  - Off label use [Not Recovered/Not Resolved]
  - Hypertension [Unknown]
  - Blood calcium increased [Unknown]
